FAERS Safety Report 15407089 (Version 2)
Quarter: 2018Q4

REPORT INFORMATION
  Report Type: Spontaneous
  Country: CA (occurrence: CA)
  Receive Date: 20180920
  Receipt Date: 20181002
  Transmission Date: 20190204
  Serious: Yes (Hospitalization)
  Sender: FDA-Public Use
  Company Number: CA-PFIZER INC-2018374088

PATIENT
  Age: 63 Year
  Sex: Female
  Weight: 62.59 kg

DRUGS (7)
  1. OLESTYR [Concomitant]
     Active Substance: CHOLESTYRAMINE
     Indication: SHORT-BOWEL SYNDROME
     Dosage: 1 G, 1X/DAY IF NEEDED
     Dates: start: 1978
  2. FOLIC ACID. [Concomitant]
     Active Substance: FOLIC ACID
     Dosage: 5 MG, 6 TIMES PER WEEK, NOT ON DAY METHOTREXATE IS TAKEN
     Route: 048
     Dates: start: 201805
  3. BOTOX [Concomitant]
     Active Substance: ONABOTULINUMTOXINA
     Dosage: CYCLIC (EVERY 10 WEEKS)
     Route: 058
     Dates: start: 2013
  4. VITAMIN B12 [Concomitant]
     Active Substance: CYANOCOBALAMIN
     Dosage: 1 ML, MONTHLY
     Route: 030
     Dates: start: 2008
  5. NEXIUM [ESOMEPRAZOLE SODIUM] [Concomitant]
     Indication: GASTROOESOPHAGEAL REFLUX DISEASE
     Dosage: UNK
     Dates: start: 2008
  6. PREDNISONE. [Concomitant]
     Active Substance: PREDNISONE
     Dosage: 25 MG, 1X/DAY
     Route: 048
  7. METHOTREXATE SODIUM. [Suspect]
     Active Substance: METHOTREXATE SODIUM
     Dosage: 25 MG, WEEKLY
     Route: 058
     Dates: start: 201805

REACTIONS (3)
  - Intestinal obstruction [Unknown]
  - Condition aggravated [Unknown]
  - Drug ineffective [Unknown]
